FAERS Safety Report 13799739 (Version 1)
Quarter: 2017Q3

REPORT INFORMATION
  Report Type: Spontaneous
  Country: US (occurrence: US)
  Receive Date: 20170727
  Receipt Date: 20170727
  Transmission Date: 20171127
  Serious: No
  Sender: FDA-Public Use
  Company Number: US-JNJFOC-20170606439

PATIENT
  Sex: Male
  Weight: 88.45 kg

DRUGS (3)
  1. MENS ROGAINE EXTRA STRENGTH [Suspect]
     Active Substance: MINOXIDIL
     Route: 061
  2. LISINOPRIL. [Concomitant]
     Active Substance: LISINOPRIL
     Indication: HYPERTENSION
     Dosage: YEARS
     Route: 065
  3. MENS ROGAINE EXTRA STRENGTH [Suspect]
     Active Substance: MINOXIDIL
     Indication: ALOPECIA
     Dosage: 3/4TH CAPFUL AMOUNT
     Route: 061
     Dates: end: 20170604

REACTIONS (4)
  - Scab [Recovering/Resolving]
  - Drug administered at inappropriate site [Recovering/Resolving]
  - Inappropriate schedule of drug administration [Recovering/Resolving]
  - Incorrect dose administered [Recovering/Resolving]
